FAERS Safety Report 5680827-9 (Version None)
Quarter: 2008Q1

REPORT INFORMATION
  Report Type: 
  Country: None (occurrence: None)
  Receive Date: 20080325
  Receipt Date: 20080317
  Transmission Date: 20080703
  Serious: Yes (Hospitalization)
  Sender: FDA-Public Use
  Company Number: 2008SP005495

PATIENT
  Age: 56 Year
  Sex: Male
  Weight: 95.2554 kg

DRUGS (12)
  1. PEG-INTRON [Suspect]
     Indication: HEPATITIS C
     Dates: start: 20070406, end: 20080229
  2. RIBAVIRIN [Suspect]
     Indication: HEPATITIS C
     Dosage: PO
     Route: 048
     Dates: start: 20070406, end: 20080229
  3. PROGRAF [Concomitant]
  4. METOPROLOL TARTRATE [Concomitant]
  5. PRILOSEC [Concomitant]
  6. LASIX [Concomitant]
  7. BACTRIM [Concomitant]
  8. PROCRIT [Concomitant]
  9. NEUPOGEN [Concomitant]
  10. FERROUS SULFATE TAB [Concomitant]
  11. LOMOTIL [Concomitant]
  12. FISH OIL [Concomitant]

REACTIONS (10)
  - ALANINE AMINOTRANSFERASE INCREASED [None]
  - ASPARTATE AMINOTRANSFERASE INCREASED [None]
  - BILIRUBIN CONJUGATED INCREASED [None]
  - BLOOD ALKALINE PHOSPHATASE INCREASED [None]
  - BLOOD BILIRUBIN UNCONJUGATED INCREASED [None]
  - CHROMATURIA [None]
  - DECREASED APPETITE [None]
  - FAECES DISCOLOURED [None]
  - HEPATOMEGALY [None]
  - OCULAR ICTERUS [None]
